FAERS Safety Report 6553996-6 (Version None)
Quarter: 2010Q1

REPORT INFORMATION
  Report Type: 
  Country: None (occurrence: None)
  Receive Date: 20100127
  Receipt Date: 20100119
  Transmission Date: 20100710
  Serious: Yes (Hospitalization)
  Sender: FDA-Public Use
  Company Number: DE-TEVA-221755ISR

PATIENT
  Age: 86 Year
  Sex: Male

DRUGS (4)
  1. HYDROCHLOROTHIAZIDE W/RAMIPRIL [Suspect]
     Dosage: 2.5/12.5 MG
     Dates: start: 20080121, end: 20080305
  2. ZOPICLONE [Suspect]
     Dates: start: 20080121, end: 20080305
  3. QUETIAPINE [Suspect]
     Dates: start: 20080131, end: 20080305
  4. RIVASTIGMINE TARTRATE [Suspect]
     Indication: DEMENTIA ALZHEIMER'S TYPE

REACTIONS (1)
  - CONFUSIONAL STATE [None]
